FAERS Safety Report 6553470-7 (Version None)
Quarter: 2010Q1

REPORT INFORMATION
  Report Type: 
  Country: None (occurrence: None)
  Receive Date: 20100122
  Receipt Date: 20100111
  Transmission Date: 20100710
  Serious: Yes (Hospitalization)
  Sender: FDA-Public Use
  Company Number: 230567M09USA

PATIENT
  Age: 56 Year
  Sex: Male

DRUGS (1)
  1. REBIF [Suspect]
     Indication: MULTIPLE SCLEROSIS
     Dosage: 44 MCG, 3 IN 1 WEEKS, SUBCUTANEOUS
     Route: 058
     Dates: start: 20070712, end: 20091202

REACTIONS (8)
  - ASTHENIA [None]
  - DYSSTASIA [None]
  - FALL [None]
  - INJECTION SITE ERYTHEMA [None]
  - INJECTION SITE INFECTION [None]
  - INJECTION SITE VESICLES [None]
  - SKIN GRAFT [None]
  - WHITE BLOOD CELL COUNT INCREASED [None]
